FAERS Safety Report 17448464 (Version 3)
Quarter: 2021Q1

REPORT INFORMATION
  Report Type: Report from Study
  Country: None (occurrence: US)
  Receive Date: 20200223
  Receipt Date: 20210209
  Transmission Date: 20210419
  Serious: Yes (Other)
  Sender: FDA-Public Use
  Company Number: US-ABBVIE-20K-163-3283092-00

PATIENT
  Age: 65 Year
  Sex: Male
  Weight: 107.6 kg

DRUGS (10)
  1. FLOMAX [Concomitant]
     Active Substance: TAMSULOSIN HYDROCHLORIDE
     Indication: PROSTATIC DISORDER
  2. COLCHICINE. [Concomitant]
     Active Substance: COLCHICINE
     Indication: GOUT
  3. HUMIRA [Suspect]
     Active Substance: ADALIMUMAB
     Indication: RHEUMATOID ARTHRITIS
     Route: 058
     Dates: start: 2018, end: 2018
  4. METOPROLOL. [Concomitant]
     Active Substance: METOPROLOL
     Indication: HYPERTENSION
  5. SIMVASTATIN. [Concomitant]
     Active Substance: SIMVASTATIN
     Indication: BLOOD CHOLESTEROL
  6. NUVIGIL [Concomitant]
     Active Substance: ARMODAFINIL
     Indication: PRODUCT USED FOR UNKNOWN INDICATION
  7. ALLOPURINOL. [Concomitant]
     Active Substance: ALLOPURINOL
     Indication: GOUT
  8. PROZAC [Concomitant]
     Active Substance: FLUOXETINE HYDROCHLORIDE
     Indication: DEPRESSION
  9. HUMIRA [Suspect]
     Active Substance: ADALIMUMAB
     Route: 058
     Dates: start: 2018
  10. DIOVAN [Concomitant]
     Active Substance: VALSARTAN
     Indication: HYPERTENSION

REACTIONS (15)
  - Device issue [Recovered/Resolved]
  - Wrong technique in product usage process [Recovered/Resolved]
  - Postoperative wound infection [Recovered/Resolved]
  - Clostridium difficile infection [Recovered/Resolved]
  - Arthritis [Not Recovered/Not Resolved]
  - Neoplasm skin [Recovered/Resolved]
  - Chondrocalcinosis pyrophosphate [Recovered/Resolved]
  - Neoplasm skin [Recovered/Resolved]
  - Pain in extremity [Not Recovered/Not Resolved]
  - Injection site erythema [Not Recovered/Not Resolved]
  - Cyst [Recovered/Resolved]
  - Arthralgia [Not Recovered/Not Resolved]
  - Squamous cell carcinoma [Recovered/Resolved]
  - Skin laceration [Recovered/Resolved]
  - Drug ineffective [Recovered/Resolved]

NARRATIVE: CASE EVENT DATE: 2018
